FAERS Safety Report 5732763-7 (Version None)
Quarter: 2008Q2

REPORT INFORMATION
  Report Type: 
  Country: None (occurrence: None)
  Receive Date: 20080509
  Receipt Date: 20080428
  Transmission Date: 20081010
  Serious: No
  Sender: FDA-Public Use
  Company Number: US-BAYER-200821482NA

PATIENT
  Age: 80 Year
  Sex: Male
  Weight: 109 kg

DRUGS (2)
  1. MAGNEVIST [Suspect]
     Indication: NUCLEAR MAGNETIC RESONANCE IMAGING
     Dosage: TOTAL DAILY DOSE: 20 ML  UNIT DOSE: 20 ML
     Route: 042
     Dates: start: 20080428, end: 20080428
  2. GLYBURIDE [Concomitant]

REACTIONS (3)
  - ERYTHEMA [None]
  - INJECTION SITE PAIN [None]
  - THROAT TIGHTNESS [None]
